FAERS Safety Report 5819380-5 (Version None)
Quarter: 2008Q3

REPORT INFORMATION
  Report Type: 
  Country: None (occurrence: None)
  Receive Date: 20080718
  Receipt Date: 20080703
  Transmission Date: 20090109
  Serious: Yes (Other)
  Sender: FDA-Public Use
  Company Number: 1000000022

PATIENT
  Age: 41 Year
  Sex: Female

DRUGS (9)
  1. CITALOPRAM (CITALOPRAM HYDROBROMIDE) (20 MILLIGRAM, TABLETS) [Suspect]
     Indication: ANXIETY
     Dosage: 20 MG (20 MG, 1 IN 1 D), ORAL; 60 MG (60 MG, 1 IN 1 D),ORAL
     Route: 048
     Dates: start: 20061005, end: 20071201
  2. CITALOPRAM (CITALOPRAM HYDROBROMIDE) (20 MILLIGRAM, TABLETS) [Suspect]
     Indication: DEPRESSION
     Dosage: 20 MG (20 MG, 1 IN 1 D), ORAL; 60 MG (60 MG, 1 IN 1 D),ORAL
     Route: 048
     Dates: start: 20061005, end: 20071201
  3. CITALOPRAM (CITALOPRAM HYDROBROMIDE) (20 MILLIGRAM, TABLETS) [Suspect]
     Indication: ANXIETY
     Dosage: 20 MG (20 MG, 1 IN 1 D), ORAL; 60 MG (60 MG, 1 IN 1 D),ORAL
     Route: 048
     Dates: start: 20071201
  4. CITALOPRAM (CITALOPRAM HYDROBROMIDE) (20 MILLIGRAM, TABLETS) [Suspect]
     Indication: DEPRESSION
     Dosage: 20 MG (20 MG, 1 IN 1 D), ORAL; 60 MG (60 MG, 1 IN 1 D),ORAL
     Route: 048
     Dates: start: 20071201
  5. TRAZODONE (50 MILLIGRAM, TABLETS) [Concomitant]
  6. CLONAZEPAM [Concomitant]
  7. ATIVAN (0.5 MILLIGRAM) [Concomitant]
  8. PANTOPRAZOLE SODIUM [Concomitant]
  9. SYNTHROID [Concomitant]

REACTIONS (3)
  - HYPERHIDROSIS [None]
  - IMPAIRED DRIVING ABILITY [None]
  - TUNNEL VISION [None]
